FAERS Safety Report 8932482 (Version 1)
Quarter: 2012Q4

REPORT INFORMATION
  Report Type: Spontaneous
  Country: NO (occurrence: None)
  Receive Date: 20121119
  Receipt Date: 20121119
  Transmission Date: 20130627
  Serious: Yes (Hospitalization)
  Sender: FDA-Public Use
  Company Number: 2012285259

PATIENT
  Age: 46 Year
  Sex: Female

DRUGS (9)
  1. FRAGMIN (DALTEPARIN SODIUM) SOLUTION FOR INJECTION [Suspect]
     Indication: IMMOBILE
  2. FRAGMIN (DALTEPARIN SODIUM) SOLUTION FOR INJECTION [Suspect]
     Indication: THROMBOSIS PROPHYLAXIS
  3. FRAGMIN (DALTEPARIN SODIUM) SOLUTION FOR INJECTION [Suspect]
     Indication: IMMOBILE
     Route: 058
     Dates: start: 20121029, end: 20121101
  4. FRAGMIN (DALTEPARIN SODIUM) SOLUTION FOR INJECTION [Suspect]
     Indication: THROMBOSIS PROPHYLAXIS
     Route: 058
     Dates: start: 20121029, end: 20121101
  5. METHOTREXATE (METHOTREXATE) [Concomitant]
  6. ASACOL [Concomitant]
  7. PREDNISOLONE (PREDNISOLONE) [Concomitant]
  8. NEXIUM (ESOMEPRAZOLE) [Concomitant]
  9. FOLIC ACID (FOLIC ACID) [Concomitant]

REACTIONS (2)
  - Headache [None]
  - Post procedural infection [None]
